FAERS Safety Report 24712984 (Version 1)
Quarter: 2024Q4

REPORT INFORMATION
  Report Type: Spontaneous
  Country: HN (occurrence: HN)
  Receive Date: 20241209
  Receipt Date: 20241209
  Transmission Date: 20250114
  Serious: Yes (Life-Threatening, Other)
  Sender: UCB
  Company Number: HN-UCBSA-2024063381

PATIENT
  Age: 62 Year
  Sex: Female

DRUGS (2)
  1. KEPPRA [Suspect]
     Active Substance: LEVETIRACETAM
     Indication: Seizure
     Dosage: 500 MILLIGRAM, 3DF DAILY
     Route: 048
     Dates: start: 2018
  2. PREDIN [Concomitant]
     Indication: Product used for unknown indication

REACTIONS (6)
  - Seizure [Unknown]
  - COVID-19 [Unknown]
  - Sinusitis [Unknown]
  - Taste disorder [Unknown]
  - Palatal disorder [Unknown]
  - Inappropriate schedule of product administration [Unknown]

NARRATIVE: CASE EVENT DATE: 20180101
